FAERS Safety Report 20650659 (Version 1)
Quarter: 2022Q1

REPORT INFORMATION
  Report Type: Spontaneous
  Country: AU (occurrence: None)
  Receive Date: 20220329
  Receipt Date: 20220329
  Transmission Date: 20220423
  Serious: Yes (Life-Threatening, Other)
  Sender: FDA-Public Use
  Company Number: 2022A130078

PATIENT
  Age: 72 Year
  Sex: Male

DRUGS (7)
  1. SAXAGLIPTIN [Suspect]
     Active Substance: SAXAGLIPTIN
     Dosage: 0.5 MG/KG/DAY
     Route: 048
  2. ESCITALOPRAM [Concomitant]
     Active Substance: ESCITALOPRAM OXALATE
     Route: 065
  3. DUTASTERIDE [Concomitant]
     Active Substance: DUTASTERIDE
     Route: 065
  4. TAMSULOSIN [Concomitant]
     Active Substance: TAMSULOSIN
     Route: 065
  5. ROSUVASTATIN [Concomitant]
     Active Substance: ROSUVASTATIN
     Route: 065
  6. INSULIN NOS [Concomitant]
     Active Substance: INSULIN NOS
     Route: 065
  7. MYCOPHENOLATE MOFETIL [Concomitant]
     Active Substance: MYCOPHENOLATE MOFETIL
     Dosage: 500 MG TWICE DAILY
     Route: 065

REACTIONS (2)
  - Toxic epidermal necrolysis [Unknown]
  - Pemphigoid [Unknown]
